FAERS Safety Report 9558016 (Version 1)
Quarter: 2013Q3

REPORT INFORMATION
  Report Type: Spontaneous
  Country: US (occurrence: US)
  Receive Date: 20130926
  Receipt Date: 20130926
  Transmission Date: 20140515
  Serious: No
  Sender: FDA-Public Use
  Company Number: US-BIOGENIDEC-2013BI037837

PATIENT
  Age: 57 Year
  Sex: Female

DRUGS (10)
  1. TECFIDERA [Suspect]
     Indication: MULTIPLE SCLEROSIS
     Route: 048
     Dates: start: 20130419
  2. TECFIDERA [Suspect]
     Indication: MULTIPLE SCLEROSIS
     Route: 048
     Dates: start: 20130518
  3. BACLOFEN [Concomitant]
     Indication: MUSCLE SPASMS
  4. COLACE [Concomitant]
  5. ASTELIN [Concomitant]
  6. CENTRUM [Concomitant]
  7. PROBIOTIC [Concomitant]
     Indication: CONSTIPATION
  8. PREDNISOLONE [Concomitant]
  9. ZYMAXID [Concomitant]
  10. DULCOLAX [Concomitant]
     Indication: CONSTIPATION

REACTIONS (6)
  - Flushing [Recovered/Resolved]
  - Abdominal discomfort [Recovered/Resolved]
  - Diarrhoea [Recovered/Resolved]
  - Neurogenic bladder [Not Recovered/Not Resolved]
  - Bladder obstruction [Not Recovered/Not Resolved]
  - Bladder disorder [Not Recovered/Not Resolved]
